FAERS Safety Report 8502534 (Version 2)
Quarter: 2013Q2

REPORT INFORMATION
  Report Type: Spontaneous
  Country: JP (occurrence: JP)
  Receive Date: 20120410
  Receipt Date: 20130521
  Transmission Date: 20140414
  Serious: Yes (Hospitalization)
  Sender: FDA-Public Use
  Company Number: JP-SP-2012-03754

PATIENT
  Age: 91 Year
  Sex: Male

DRUGS (1)
  1. IMMUCYST [Suspect]
     Indication: OFF LABEL USE
     Dosage: 81 MG SOLVED IN 40 ML NORMAL SALINE
     Route: 043
     Dates: start: 201010

REACTIONS (7)
  - Reiter^s syndrome [Unknown]
  - Liver disorder [Recovered/Resolved]
  - Arthralgia [Unknown]
  - Pyrexia [Unknown]
  - Back pain [Unknown]
  - Off label use [Unknown]
  - Arthralgia [Recovered/Resolved]
